FAERS Safety Report 9099537 (Version 3)
Quarter: 2013Q1

REPORT INFORMATION
  Report Type: Spontaneous
  Country: US (occurrence: US)
  Receive Date: 20130214
  Receipt Date: 20130329
  Transmission Date: 20140127
  Serious: No
  Sender: FDA-Public Use
  Company Number: US-B.I. PHARMACEUTICALS,INC./RIDGEFIELD-2013-BI-04078BP

PATIENT
  Age: 87 Year
  Sex: Female
  Weight: 59.42 kg

DRUGS (13)
  1. PRADAXA [Suspect]
     Indication: ATRIAL FIBRILLATION
     Dosage: 300 MG
     Route: 048
     Dates: start: 20130205, end: 20130210
  2. ALPHAGAN [Concomitant]
  3. ALTACE [Concomitant]
     Dosage: 10 MG
     Route: 048
  4. ASPIRIN [Concomitant]
     Dosage: 81 MG
     Route: 048
  5. ATIVAN [Concomitant]
     Dosage: 0.5 MG
     Route: 048
  6. BETAPACE [Concomitant]
     Dosage: 80 MG
     Route: 048
  7. HYDROCHLOROTHIAZIDE [Concomitant]
     Dosage: 25 MG
     Route: 048
  8. IMDUR [Concomitant]
     Dosage: 30 MG
     Route: 048
  9. LORTAB [Concomitant]
     Route: 048
  10. MURO-128 [Concomitant]
  11. NEURONTIN [Concomitant]
     Route: 048
  12. NITROGLYCERIN [Concomitant]
     Route: 048
  13. ZYRTEC [Concomitant]
     Route: 048

REACTIONS (2)
  - Syncope [Recovered/Resolved]
  - Dizziness [Recovered/Resolved]
